FAERS Safety Report 4631078-8 (Version None)
Quarter: 2005Q2

REPORT INFORMATION
  Report Type: 
  Country: None (occurrence: None)
  Receive Date: 20050406
  Receipt Date: 20050406
  Transmission Date: 20051028
  Serious: Yes (Hospitalization)
  Sender: FDA-Public Use
  Company Number: None

PATIENT
  Age: 76 Year
  Sex: Female
  Weight: 98.9 kg

DRUGS (9)
  1. WARFARIN [Suspect]
     Indication: HIP ARTHROPLASTY
     Dosage: 10 DAILY EXCEPT 7.5 MG ON SAT + SUN
     Dates: start: 20040701
  2. PRAVACHOL [Concomitant]
  3. POTASSIUM CHLORIDE [Concomitant]
  4. TOPROL-XL [Concomitant]
  5. SENNOKOT [Concomitant]
  6. ENALAPRIL [Concomitant]
  7. LASIX [Concomitant]
  8. VICODIN [Concomitant]
  9. DULCOLAX [Concomitant]

REACTIONS (3)
  - DIZZINESS [None]
  - GASTRITIS EROSIVE [None]
  - UPPER GASTROINTESTINAL HAEMORRHAGE [None]
